FAERS Safety Report 9431524 (Version 2)
Quarter: 2013Q3

REPORT INFORMATION
  Report Type: Spontaneous
  Country: US (occurrence: US)
  Receive Date: 20130730
  Receipt Date: 20130819
  Transmission Date: 20140515
  Serious: Yes (Other)
  Sender: FDA-Public Use
  Company Number: US-009507513-1307USA006095

PATIENT
  Age: 17 Year
  Sex: Female
  Weight: 98.41 kg

DRUGS (1)
  1. NEXPLANON [Suspect]
     Indication: CONTRACEPTION
     Dosage: ONE ROD/EVERY THREE YEARS
     Route: 059
     Dates: start: 20130611

REACTIONS (10)
  - Rash [Recovered/Resolved]
  - Pyrexia [Recovered/Resolved]
  - Implant site cellulitis [Recovered/Resolved]
  - Joint swelling [Unknown]
  - Rash pruritic [Unknown]
  - Joint warmth [Unknown]
  - Urticaria papular [Unknown]
  - Erythema [Unknown]
  - Local swelling [Unknown]
  - Nodule [Unknown]
